FAERS Safety Report 25471947 (Version 2)
Quarter: 2025Q3

REPORT INFORMATION
  Report Type: Spontaneous
  Country: EG (occurrence: EG)
  Receive Date: 20250624
  Receipt Date: 20250702
  Transmission Date: 20251020
  Serious: Yes (Death, Other)
  Sender: NOVO NORDISK
  Company Number: EG-NOVOPROD-1460906

PATIENT

DRUGS (4)
  1. NOVORAPID [Suspect]
     Active Substance: INSULIN ASPART
     Indication: Type 1 diabetes mellitus
     Dosage: 50 IU, QD(15 U, 15 U AND 20 U/NIGHT)
     Route: 064
  2. LANTUS [Concomitant]
     Active Substance: INSULIN GLARGINE
     Indication: Type 1 diabetes mellitus
     Dosage: 24 IU, QD
     Route: 064
  3. FORADIL [Concomitant]
     Active Substance: FORMOTEROL FUMARATE
     Indication: Allergic respiratory disease
     Route: 064
  4. BUDESONIDE [Concomitant]
     Active Substance: BUDESONIDE
     Indication: Allergic respiratory disease
     Route: 064

REACTIONS (2)
  - Foetal malformation [Fatal]
  - Foetal exposure during pregnancy [Recovered/Resolved]
